FAERS Safety Report 18114649 (Version 1)
Quarter: 2020Q3

REPORT INFORMATION
  Report Type: Spontaneous
  Country: CY (occurrence: CY)
  Receive Date: 20200805
  Receipt Date: 20200805
  Transmission Date: 20201103
  Serious: Yes (Hospitalization, Other)
  Sender: FDA-Public Use
  Company Number: CY-009507513-2007CYP011423

PATIENT
  Age: 68 Year
  Sex: Female

DRUGS (4)
  1. PEMBROLIZUMAB. [Suspect]
     Active Substance: PEMBROLIZUMAB
     Indication: LUNG NEOPLASM MALIGNANT
     Dosage: THREE WEEKLY PEMBROLIZUMAB INFUSIONS
     Dates: start: 201703, end: 2017
  2. METOPROLOL. [Concomitant]
     Active Substance: METOPROLOL
     Indication: ATRIAL FIBRILLATION
  3. LOSARTAN POTASSIUM. [Concomitant]
     Active Substance: LOSARTAN POTASSIUM
     Indication: HYPERTENSION
  4. PEMBROLIZUMAB. [Suspect]
     Active Substance: PEMBROLIZUMAB
     Dosage: THREE WEEKLY PEMBROLIZUMAB INFUSIONS
     Dates: start: 2017, end: 201810

REACTIONS (4)
  - Diabetes mellitus [Recovering/Resolving]
  - Drug ineffective [Unknown]
  - Arthritis [Unknown]
  - Thyroiditis [Unknown]

NARRATIVE: CASE EVENT DATE: 2017
